FAERS Safety Report 4693435-3 (Version None)
Quarter: 2005Q2

REPORT INFORMATION
  Report Type: 
  Country: None (occurrence: None)
  Receive Date: 20050615
  Receipt Date: 20050531
  Transmission Date: 20051028
  Serious: Yes (Death, Other)
  Sender: FDA-Public Use
  Company Number: USA-2005-0019662

PATIENT
  Age: 31 Year
  Sex: Male
  Weight: 86.6 kg

DRUGS (8)
  1. OXYCONTIN [Suspect]
  2. AMPHETAMINE SULFATE [Suspect]
  3. ALCOHOL(ETHANOL) [Suspect]
  4. ADDERALL 10 [Suspect]
  5. ZYPREXA [Concomitant]
  6. VALIUM [Concomitant]
  7. TEMAZEPAM [Concomitant]
  8. ANTIHYPERTENSIVES [Concomitant]

REACTIONS (21)
  - ACCIDENTAL DEATH [None]
  - ALCOHOL USE [None]
  - APNOEA [None]
  - ARTERIAL OCCLUSIVE DISEASE [None]
  - CARDIAC ARREST [None]
  - CARDIAC FAILURE CONGESTIVE [None]
  - DEPRESSION [None]
  - DISSEMINATED INTRAVASCULAR COAGULATION [None]
  - DRUG TOXICITY [None]
  - DYSPNOEA [None]
  - HAEMORRHAGIC DISORDER [None]
  - HYPERTENSIVE HEART DISEASE [None]
  - INJURY ASPHYXIATION [None]
  - LOSS OF CONSCIOUSNESS [None]
  - MOUNTAIN SICKNESS ACUTE [None]
  - MULTIPLE DRUG OVERDOSE ACCIDENTAL [None]
  - POLYSUBSTANCE ABUSE [None]
  - PULMONARY THROMBOSIS [None]
  - THROMBOSIS [None]
  - URINE ALCOHOL TEST POSITIVE [None]
  - VOMITING [None]
